FAERS Safety Report 5690108-5 (Version None)
Quarter: 2008Q1

REPORT INFORMATION
  Report Type: 
  Country: None (occurrence: None)
  Receive Date: 20080331
  Receipt Date: 20080331
  Transmission Date: 20080703
  Serious: Yes (Other)
  Sender: FDA-Public Use
  Company Number: None

PATIENT
  Sex: Male
  Weight: 61.2356 kg

DRUGS (1)
  1. LIPITOR [Suspect]
     Indication: CARDIAC DISORDER
     Dosage: PILL ONCE A DAY PO; 10 TO 11 YEARS
     Route: 048

REACTIONS (4)
  - BASAL CELL CARCINOMA [None]
  - BENIGN BREAST NEOPLASM [None]
  - DRUG THERAPY CHANGED [None]
  - SKIN CANCER [None]
